FAERS Safety Report 6690538-9 (Version None)
Quarter: 2010Q2

REPORT INFORMATION
  Report Type: 
  Country: None (occurrence: None)
  Receive Date: 20100421
  Receipt Date: 20100409
  Transmission Date: 20101027
  Serious: Yes (Death, Other)
  Sender: FDA-Public Use
  Company Number: FR-CEPHALON-2010002279

PATIENT
  Sex: Female

DRUGS (1)
  1. TREANDA [Suspect]
     Indication: MULTIPLE MYELOMA
     Dates: start: 20081126, end: 20090116

REACTIONS (4)
  - FEBRILE NEUTROPENIA [None]
  - LUNG DISORDER [None]
  - MULTIPLE MYELOMA [None]
  - THROMBOCYTOPENIA [None]
